FAERS Safety Report 6275430-6 (Version None)
Quarter: 2009Q3

REPORT INFORMATION
  Report Type: 
  Country: None (occurrence: None)
  Receive Date: 20090721
  Receipt Date: 20090529
  Transmission Date: 20100115
  Serious: Yes (Hospitalization, Other)
  Sender: FDA-Public Use
  Company Number: JP-JNJFOC-20090702363

PATIENT
  Age: 56 Year
  Sex: Male

DRUGS (6)
  1. ITRACONAZOLE [Suspect]
     Indication: DRUG USE FOR UNKNOWN INDICATION
     Route: 065
  2. TACROLIMUS [Interacting]
     Route: 065
  3. TACROLIMUS [Interacting]
     Route: 065
  4. TACROLIMUS [Interacting]
     Indication: RHEUMATOID ARTHRITIS
     Route: 065
  5. CLARITHROMYCIN [Interacting]
     Indication: UPPER RESPIRATORY TRACT INFECTION
     Route: 065
  6. PREDNISOLONE [Concomitant]
     Route: 065

REACTIONS (2)
  - DRUG INTERACTION [None]
  - HYPERGLYCAEMIA [None]
